FAERS Safety Report 26216928 (Version 1)
Quarter: 2025Q4

REPORT INFORMATION
  Report Type: Spontaneous
  Country: EU (occurrence: EU)
  Receive Date: 20251231
  Receipt Date: 20251231
  Transmission Date: 20260119
  Serious: Yes (Other)
  Sender: SAMSUNG BIOEPIS
  Company Number: EU-SAMSUNG BIOEPIS-SB-2025-43141

PATIENT
  Age: 9 Year
  Sex: Female

DRUGS (3)
  1. ECULIZUMAB [Suspect]
     Active Substance: ECULIZUMAB
     Indication: Gastroenteritis Escherichia coli
     Dosage: SINGLE INFUSION;
  2. ECULIZUMAB [Suspect]
     Active Substance: ECULIZUMAB
     Indication: Renal-limited thrombotic microangiopathy
     Dosage: FOR 2 MONTHS;
  3. RITUXIMAB [Concomitant]
     Active Substance: RITUXIMAB
     Indication: Posterior reversible encephalopathy syndrome
     Dosage: 4 DOSES;

REACTIONS (8)
  - Traumatic subarachnoid haemorrhage [Unknown]
  - Subdural haemorrhage [Unknown]
  - Renal-limited thrombotic microangiopathy [Unknown]
  - Posterior reversible encephalopathy syndrome [Unknown]
  - Atypical haemolytic uraemic syndrome [Unknown]
  - Hypertension [Unknown]
  - Drug ineffective for unapproved indication [Unknown]
  - Off label use [Unknown]
